FAERS Safety Report 26056868 (Version 1)
Quarter: 2025Q4

REPORT INFORMATION
  Report Type: Spontaneous
  Country: US (occurrence: US)
  Receive Date: 20251118
  Receipt Date: 20251118
  Transmission Date: 20260118
  Serious: No
  Sender: AMNEAL
  Company Number: US-AMNEAL PHARMACEUTICALS-2025-AMRX-01129

PATIENT
  Age: 17 Year
  Sex: Female
  Weight: 56.689 kg

DRUGS (4)
  1. ISOTRETINOIN [Suspect]
     Active Substance: ISOTRETINOIN
     Indication: Acne
     Dosage: 2 CAPSULES, 2X/DAY
     Dates: start: 20241029, end: 20250320
  2. DOXYCYCLINE [Concomitant]
     Active Substance: DOXYCYCLINE
     Indication: Product used for unknown indication
     Route: 065
  3. TRETINOIN [Concomitant]
     Active Substance: TRETINOIN
     Indication: Product used for unknown indication
     Dosage: 0.025%
     Route: 065
  4. TRETINOIN [Concomitant]
     Active Substance: TRETINOIN
     Dosage: 0.01%
     Route: 065

REACTIONS (3)
  - Drug ineffective [Unknown]
  - Insomnia [Unknown]
  - Dry eye [Unknown]

NARRATIVE: CASE EVENT DATE: 20250124
